FAERS Safety Report 5836751-1 (Version None)
Quarter: 2008Q3

REPORT INFORMATION
  Report Type: 
  Country: None (occurrence: None)
  Receive Date: 20080805
  Receipt Date: 20080725
  Transmission Date: 20090109
  Serious: Yes (Death, Hospitalization)
  Sender: FDA-Public Use
  Company Number: 2008AL006125

PATIENT
  Age: 83 Year
  Sex: Female

DRUGS (1)
  1. DIGOXIN [Suspect]
     Indication: CARDIAC DISORDER

REACTIONS (7)
  - ANOREXIA [None]
  - ASTHENIA [None]
  - DIARRHOEA [None]
  - FALL [None]
  - HYPOPHAGIA [None]
  - OEDEMA PERIPHERAL [None]
  - SOMNOLENCE [None]
